FAERS Safety Report 7495333-9 (Version None)
Quarter: 2011Q2

REPORT INFORMATION
  Report Type: 
  Country: None (occurrence: None)
  Receive Date: 20110523
  Receipt Date: 20110511
  Transmission Date: 20111010
  Serious: Yes (Hospitalization)
  Sender: FDA-Public Use
  Company Number: US-BIOGENIDEC-2010BI008650

PATIENT
  Age: 61 Year
  Sex: Female

DRUGS (1)
  1. AVONEX [Suspect]
     Indication: MULTIPLE SCLEROSIS
     Route: 030
     Dates: start: 20030428

REACTIONS (4)
  - HERNIA REPAIR [None]
  - ABSCESS INTESTINAL [None]
  - LARGE INTESTINE ANASTOMOSIS [None]
  - DIVERTICULITIS [None]
